FAERS Safety Report 7862125 (Version 4)
Quarter: 2014Q1

REPORT INFORMATION
  Report Type: Spontaneous
  Country: US (occurrence: US)
  Receive Date: 20110318
  Receipt Date: 20140107
  Transmission Date: 20141002
  Serious: Yes (Hospitalization)
  Sender: FDA-Public Use
  Company Number: US-B.I. PHARMACEUTICALS,INC./RIDGEFIELD-2011-BP-08058BP

PATIENT
  Age: 73 Year
  Sex: Female
  Weight: 70.31 kg

DRUGS (11)
  1. PRADAXA [Suspect]
     Indication: ATRIAL FIBRILLATION
     Dosage: 300 MG
     Route: 048
     Dates: start: 201011, end: 20111205
  2. POTASSIUM [Concomitant]
     Indication: OEDEMA
     Dosage: 20 MEQ
  3. FUROSEMIDE [Concomitant]
     Indication: OEDEMA
     Dosage: 60 MG
  4. CARDIEZEM [Concomitant]
     Indication: CARDIAC DISORDER
  5. FOSAMAX [Concomitant]
     Indication: BONE DISORDER
  6. ADVAIR [Concomitant]
     Indication: EMPHYSEMA
  7. SINGULAIR [Concomitant]
     Indication: EMPHYSEMA
  8. DILTIAZEM HCL [Concomitant]
     Dosage: 360 MG
  9. FLAX OIL [Concomitant]
     Dosage: 2000 MG
  10. FISH OIL [Concomitant]
     Dosage: 1000 MG
  11. VITEYES VITAMIN [Concomitant]

REACTIONS (6)
  - Gastrointestinal haemorrhage [Unknown]
  - Anaemia [Unknown]
  - Cardiac failure congestive [Unknown]
  - Bradyarrhythmia [Not Recovered/Not Resolved]
  - Oedema [Unknown]
  - Local swelling [Unknown]
